FAERS Safety Report 18551306 (Version 1)
Quarter: 2020Q4

REPORT INFORMATION
  Report Type: Spontaneous
  Country: GB (occurrence: GB)
  Receive Date: 20201126
  Receipt Date: 20201126
  Transmission Date: 20210114
  Serious: Yes (Disabling, Other)
  Sender: FDA-Public Use
  Company Number: GB-TEVA-2020-GB-1852443

PATIENT
  Age: 54 Year
  Sex: Male
  Weight: 72.3 kg

DRUGS (8)
  1. METRONIDAZOLE. [Concomitant]
     Active Substance: METRONIDAZOLE
  2. CIPROFLOXACIN HYDROCHLORIDE. [Suspect]
     Active Substance: CIPROFLOXACIN HYDROCHLORIDE
     Indication: URINARY TRACT INFECTION PSEUDOMONAL
     Dosage: 1000 MG
     Route: 048
     Dates: start: 20201024, end: 20201027
  3. INFLIXIMAB [Concomitant]
     Active Substance: INFLIXIMAB
  4. CEFALEXIN [Concomitant]
     Active Substance: CEPHALEXIN
  5. CEFTAZIDIME. [Concomitant]
     Active Substance: CEFTAZIDIME
  6. OMEPRAZOLE. [Concomitant]
     Active Substance: OMEPRAZOLE
  7. NAPROXEN. [Concomitant]
     Active Substance: NAPROXEN
  8. ALLOPURINOL. [Concomitant]
     Active Substance: ALLOPURINOL

REACTIONS (1)
  - Neuralgia [Not Recovered/Not Resolved]

NARRATIVE: CASE EVENT DATE: 20201027
